FAERS Safety Report 21109052 (Version 2)
Quarter: 2022Q3

REPORT INFORMATION
  Report Type: Spontaneous
  Country: FR (occurrence: FR)
  Receive Date: 20220721
  Receipt Date: 20220728
  Transmission Date: 20221027
  Serious: Yes (Other)
  Sender: FDA-Public Use
  Company Number: None

PATIENT
  Age: 74 Year
  Sex: Male
  Weight: 88 kg

DRUGS (31)
  1. DILTIAZEM HYDROCHLORIDE [Interacting]
     Active Substance: DILTIAZEM HYDROCHLORIDE
     Indication: Hypertension
     Route: 048
     Dates: end: 20210405
  2. VENLAFAXINE HYDROCHLORIDE [Interacting]
     Active Substance: VENLAFAXINE HYDROCHLORIDE
     Indication: Depression
     Route: 048
     Dates: start: 20191226, end: 20210405
  3. CYAMEMAZINE [Interacting]
     Active Substance: CYAMEMAZINE
     Indication: Anxiety
     Route: 048
     Dates: start: 20210402, end: 20210406
  4. QUETIAPINE FUMARATE [Interacting]
     Active Substance: QUETIAPINE FUMARATE
     Indication: Depression
     Route: 048
     Dates: start: 20201208, end: 20210405
  5. MIRTAZAPINE [Interacting]
     Active Substance: MIRTAZAPINE
     Indication: Depression
     Route: 048
     Dates: start: 20191216, end: 20210404
  6. MIRTAZAPINE [Interacting]
     Active Substance: MIRTAZAPINE
     Route: 048
     Dates: start: 20191216, end: 20210404
  7. CLORAZEPATE DIPOTASSIUM\SULPIRIDE [Interacting]
     Active Substance: CLORAZEPATE DIPOTASSIUM\SULPIRIDE
     Indication: Prophylaxis against alcoholic withdrawal syndrome
     Route: 048
     Dates: start: 20210402, end: 20210405
  8. MINERAL OIL [Concomitant]
     Active Substance: MINERAL OIL
     Indication: Constipation
     Route: 048
     Dates: start: 20210403, end: 20210405
  9. MINERAL OIL [Concomitant]
     Active Substance: MINERAL OIL
     Dosage: (PARAFFIN, LIQUID)
     Route: 065
     Dates: start: 20210403, end: 20210405
  10. HYDROCHLOROTHIAZIDE [Concomitant]
     Active Substance: HYDROCHLOROTHIAZIDE
     Indication: Hypertension
     Route: 048
     Dates: start: 2017, end: 20210405
  11. HYDROCHLOROTHIAZIDE [Concomitant]
     Active Substance: HYDROCHLOROTHIAZIDE
     Route: 065
     Dates: start: 2017, end: 20210405
  12. PRADAXA [Concomitant]
     Active Substance: DABIGATRAN ETEXILATE MESYLATE
     Indication: Atrial fibrillation
     Route: 048
     Dates: end: 20210405
  13. PRADAXA [Concomitant]
     Active Substance: DABIGATRAN ETEXILATE MESYLATE
     Route: 065
     Dates: end: 20210405
  14. ATORVASTATIN [Concomitant]
     Active Substance: ATORVASTATIN
     Indication: Dyslipidaemia
     Route: 048
     Dates: start: 2017, end: 20210406
  15. ATORVASTATIN [Concomitant]
     Active Substance: ATORVASTATIN
     Route: 065
     Dates: start: 2017, end: 20210406
  16. NICOTINE [Concomitant]
     Active Substance: NICOTINE
     Indication: Nicotine dependence
     Route: 062
     Dates: start: 20210404, end: 20210405
  17. NICOTINE [Concomitant]
     Active Substance: NICOTINE
     Route: 065
     Dates: start: 20210404, end: 20210405
  18. LACTULOSE [Concomitant]
     Active Substance: LACTULOSE
     Indication: Constipation
     Route: 048
     Dates: end: 20210404
  19. LACTULOSE [Concomitant]
     Active Substance: LACTULOSE
     Route: 065
     Dates: end: 20210404
  20. EZETIMIBE [Concomitant]
     Active Substance: EZETIMIBE
     Indication: Dyslipidaemia
     Route: 048
     Dates: start: 2017, end: 20210404
  21. EZETIMIBE [Concomitant]
     Active Substance: EZETIMIBE
     Route: 065
     Dates: start: 2017, end: 20210404
  22. IRBESARTAN [Concomitant]
     Active Substance: IRBESARTAN
     Indication: Hypertension
     Route: 048
     Dates: start: 2017, end: 20210404
  23. IRBESARTAN [Concomitant]
     Active Substance: IRBESARTAN
     Route: 065
     Dates: start: 2017, end: 20210404
  24. ACETAMINOPHEN [Concomitant]
     Active Substance: ACETAMINOPHEN
     Indication: Pain
     Route: 048
     Dates: start: 20210402, end: 20210402
  25. ACETAMINOPHEN [Concomitant]
     Active Substance: ACETAMINOPHEN
     Route: 065
     Dates: start: 20210402, end: 20210402
  26. VERAPAMIL HYDROCHLORIDE [Concomitant]
     Active Substance: VERAPAMIL HYDROCHLORIDE
     Indication: Hypertension
     Route: 048
     Dates: start: 20191212, end: 20210405
  27. VERAPAMIL HYDROCHLORIDE [Concomitant]
     Active Substance: VERAPAMIL HYDROCHLORIDE
     Route: 065
     Dates: start: 20191212, end: 20210405
  28. ZOLPIDEM [Concomitant]
     Active Substance: ZOLPIDEM TARTRATE
     Indication: Insomnia
     Route: 048
     Dates: start: 20210405, end: 20210405
  29. ZOLPIDEM [Concomitant]
     Active Substance: ZOLPIDEM TARTRATE
     Route: 065
     Dates: start: 20210405, end: 20210405
  30. VILDAGLIPTIN [Concomitant]
     Active Substance: VILDAGLIPTIN
     Indication: Type 2 diabetes mellitus
     Route: 048
     Dates: end: 20210405
  31. VILDAGLIPTIN [Concomitant]
     Active Substance: VILDAGLIPTIN
     Route: 065
     Dates: end: 20210405

REACTIONS (1)
  - Intestinal obstruction [Recovering/Resolving]

NARRATIVE: CASE EVENT DATE: 20210406
